FAERS Safety Report 10618482 (Version 1)
Quarter: 2014Q4

REPORT INFORMATION
  Report Type: Spontaneous
  Country: US (occurrence: US)
  Receive Date: 20141202
  Receipt Date: 20141202
  Transmission Date: 20150529
  Serious: No
  Sender: FDA-Public Use
  Company Number: US-TEVA-501643USA

PATIENT
  Age: 63 Year
  Sex: Female
  Weight: 81.72 kg

DRUGS (2)
  1. AZITHROMYCIN [Suspect]
     Active Substance: AZITHROMYCIN ANHYDROUS
     Indication: PNEUMONIA
     Dosage: 250 MILLIGRAM DAILY;
     Route: 065
     Dates: start: 20140721
  2. FLONASE [Concomitant]
     Active Substance: FLUTICASONE PROPIONATE
     Indication: SINUSITIS

REACTIONS (1)
  - Hearing impaired [Not Recovered/Not Resolved]

NARRATIVE: CASE EVENT DATE: 201407
